FAERS Safety Report 14926872 (Version 1)
Quarter: 2018Q2

REPORT INFORMATION
  Report Type: Spontaneous
  Country: FR (occurrence: FR)
  Receive Date: 20180523
  Receipt Date: 20180523
  Transmission Date: 20180711
  Serious: Yes (Other)
  Sender: FDA-Public Use
  Company Number: FR-MERCK KGAA-2048283

PATIENT
  Age: 68 Year
  Sex: Female

DRUGS (1)
  1. NOVOTHYROX [Suspect]
     Active Substance: LEVOTHYROXINE SODIUM
     Indication: PRODUCT USED FOR UNKNOWN INDICATION
     Dates: start: 201706, end: 201709

REACTIONS (23)
  - Irritability [Recovered/Resolved]
  - Anxiety [Recovered/Resolved]
  - Transaminases increased [Recovering/Resolving]
  - Blood thyroid stimulating hormone increased [Recovered/Resolved]
  - Palpitations [Recovered/Resolved]
  - Gamma-glutamyltransferase increased [Not Recovered/Not Resolved]
  - Dizziness [Recovered/Resolved]
  - Loss of libido [Recovering/Resolving]
  - Tachycardia [Recovering/Resolving]
  - Marital problem [Recovering/Resolving]
  - Weight decreased [Recovering/Resolving]
  - Headache [Recovered/Resolved]
  - Aggression [Recovering/Resolving]
  - Decreased interest [Recovering/Resolving]
  - Liver disorder [Recovering/Resolving]
  - Fatigue [Recovered/Resolved]
  - Insomnia [Recovered/Resolved]
  - Apathy [Recovering/Resolving]
  - Temperature intolerance [Recovering/Resolving]
  - Loss of personal independence in daily activities [Recovering/Resolving]
  - Social avoidant behaviour [Recovering/Resolving]
  - Blood 25-hydroxycholecalciferol decreased [Recovered/Resolved]
  - Asocial behaviour [Recovering/Resolving]

NARRATIVE: CASE EVENT DATE: 2017
